FAERS Safety Report 8444402-5 (Version None)
Quarter: 2012Q2

REPORT INFORMATION
  Report Type: 
  Country: None (occurrence: None)
  Receive Date: 20120618
  Receipt Date: 20120607
  Transmission Date: 20120825
  Serious: Yes (Hospitalization, Other)
  Sender: FDA-Public Use
  Company Number: FR-ELI_LILLY_AND_COMPANY-FR201206002476

PATIENT
  Sex: Female

DRUGS (10)
  1. CISPLATIN [Concomitant]
  2. IMOVANE [Concomitant]
  3. ANAUSIN [Concomitant]
  4. XANAX [Concomitant]
     Dosage: 75 MG, BID
  5. NEXIUM [Concomitant]
     Dosage: 40 MG, UNK
  6. FOLIC ACID [Concomitant]
     Dosage: 0.4 MG, UNK
  7. TRAMADOL HCL [Concomitant]
     Dosage: 50 MG, UNK
  8. BISOPROLOL FUMARATE AND HYDROCHLOROTHIAZIDE [Concomitant]
  9. PREDNISOLONE [Concomitant]
     Dosage: 20 MG, UNK
  10. ALIMTA [Suspect]
     Indication: BRONCHIAL CARCINOMA
     Dosage: UNK
     Route: 042
     Dates: start: 20120515

REACTIONS (1)
  - ARTERIAL DISORDER [None]
